FAERS Safety Report 4430715-0 (Version None)
Quarter: 2004Q3

REPORT INFORMATION
  Report Type: 
  Country: None (occurrence: None)
  Receive Date: 20040819
  Receipt Date: 20040819
  Transmission Date: 20050211
  Serious: Yes (Life-Threatening, Other)
  Sender: FDA-Public Use
  Company Number: None

PATIENT
  Age: 39 Year
  Sex: Female

DRUGS (3)
  1. AFRIN [Suspect]
     Indication: NASOPHARYNGITIS
     Dosage: 1 SPRAY TID NAS AER SPRA
     Route: 045
     Dates: start: 20040803, end: 20040803
  2. PSEUDOEPHEDRINE HCL [Suspect]
     Indication: UPPER RESPIRATORY TRACT INFECTION
     Dosage: 60 MG PO ORAL
     Route: 048
     Dates: start: 20040803, end: 20040803
  3. ORTHO FOR CONTRACEPTION [Concomitant]

REACTIONS (7)
  - AMNESIA [None]
  - DIZZINESS [None]
  - GRAND MAL CONVULSION [None]
  - IMPAIRED DRIVING ABILITY [None]
  - POSTICTAL STATE [None]
  - SOMNOLENCE [None]
  - VISUAL DISTURBANCE [None]
